FAERS Safety Report 5050446-6 (Version None)
Quarter: 2006Q3

REPORT INFORMATION
  Report Type: 
  Country: None (occurrence: None)
  Receive Date: 20060707
  Receipt Date: 20060621
  Transmission Date: 20061208
  Serious: Yes (Other)
  Sender: FDA-Public Use
  Company Number: 8015330

PATIENT
  Sex: Male
  Weight: 54 kg

DRUGS (4)
  1. KEPPRA [Suspect]
     Indication: EPILEPSY
     Dosage: 500 MG 3/D
     Dates: start: 20020101, end: 20050101
  2. KEPPRA [Suspect]
     Indication: EPILEPSY
     Dosage: 1.25 G /D
     Dates: start: 20050101, end: 20060101
  3. KEPPRA [Suspect]
     Indication: EPILEPSY
     Dosage: 1 G /D
     Dates: start: 20060101
  4. KEPPRA [Suspect]
     Indication: EPILEPSY
     Dosage: 625 MG /D

REACTIONS (7)
  - DIZZINESS [None]
  - GLOMERULAR FILTRATION RATE INCREASED [None]
  - HEADACHE [None]
  - LEUKOPENIA [None]
  - PH URINE INCREASED [None]
  - THROMBOCYTOPENIA [None]
  - VIRAL INFECTION [None]
